FAERS Safety Report 21002035 (Version 2)
Quarter: 2022Q3

REPORT INFORMATION
  Report Type: Spontaneous
  Country: US (occurrence: US)
  Receive Date: 20220624
  Receipt Date: 20220822
  Transmission Date: 20221027
  Serious: Yes (Other)
  Sender: FDA-Public Use
  Company Number: US-JNJFOC-20220635252

PATIENT
  Age: 3 Decade
  Sex: Female

DRUGS (3)
  1. ELMIRON [Suspect]
     Active Substance: PENTOSAN POLYSULFATE SODIUM
     Indication: Cystitis interstitial
     Route: 048
     Dates: start: 2009, end: 201101
  2. ELMIRON [Suspect]
     Active Substance: PENTOSAN POLYSULFATE SODIUM
     Route: 048
     Dates: start: 201106, end: 201201
  3. ELMIRON [Suspect]
     Active Substance: PENTOSAN POLYSULFATE SODIUM
     Route: 048
     Dates: start: 2012, end: 202006

REACTIONS (7)
  - Toxicity to various agents [Unknown]
  - Dry eye [Unknown]
  - Vision blurred [Unknown]
  - Abdominal discomfort [Unknown]
  - Alopecia [Unknown]
  - Metamorphopsia [Unknown]
  - Delayed dark adaptation [Unknown]

NARRATIVE: CASE EVENT DATE: 20140101
